FAERS Safety Report 8635603 (Version 4)
Quarter: 2012Q4

REPORT INFORMATION
  Report Type: Report from Study
  Country: JP (occurrence: JP)
  Receive Date: 20120626
  Receipt Date: 20121108
  Transmission Date: 20130627
  Serious: Yes (Hospitalization)
  Sender: FDA-Public Use
  Company Number: JP-ROCHE-1081315

PATIENT
  Age: 70 Year
  Sex: Female

DRUGS (8)
  1. TOCILIZUMAB [Suspect]
     Indication: RHEUMATOID ARTHRITIS
     Route: 041
     Dates: start: 20120315, end: 20120315
  2. TOCILIZUMAB [Suspect]
     Route: 041
     Dates: start: 20120509, end: 20120627
  3. TOCILIZUMAB [Suspect]
     Route: 041
     Dates: start: 20120725
  4. PREDONINE [Concomitant]
     Indication: RHEUMATOID ARTHRITIS
     Dosage: Dosage is uncertain.
     Route: 048
     Dates: end: 20120529
  5. PREDONINE [Concomitant]
     Indication: RHEUMATOID ARTHRITIS
     Dosage: Dosage is uncertain.
     Route: 048
     Dates: start: 20120530, end: 20120724
  6. PREDONINE [Concomitant]
     Indication: RHEUMATOID ARTHRITIS
     Dosage: Dosage is uncertain.
     Route: 048
     Dates: start: 20120725, end: 20120821
  7. PREDONINE [Concomitant]
     Indication: RHEUMATOID ARTHRITIS
     Dosage: Dosage is uncertain.
     Route: 048
     Dates: start: 20120822, end: 20120918
  8. PREDONINE [Concomitant]
     Indication: RHEUMATOID ARTHRITIS
     Dosage: Dosage is uncertain.
     Route: 048
     Dates: start: 20120919

REACTIONS (2)
  - Hepatic function abnormal [Recovered/Resolved]
  - Gastroenteritis [Recovered/Resolved]
